FAERS Safety Report 11192629 (Version 4)
Quarter: 2015Q4

REPORT INFORMATION
  Report Type: Spontaneous
  Country: US (occurrence: US)
  Receive Date: 20150616
  Receipt Date: 20151001
  Transmission Date: 20160304
  Serious: No
  Sender: FDA-Public Use
  Company Number: US-PFIZER INC-2015199692

PATIENT
  Age: 63 Year
  Sex: Male
  Weight: 75 kg

DRUGS (2)
  1. ALPRAZOLAM. [Suspect]
     Active Substance: ALPRAZOLAM
     Indication: PANIC DISORDER
     Dosage: 1 MG, 3X/DAY
  2. ALPRAZOLAM. [Suspect]
     Active Substance: ALPRAZOLAM
     Indication: ANXIETY
     Dosage: 1 MG, 3X/DAY

REACTIONS (9)
  - Product quality issue [Unknown]
  - Tongue discolouration [Recovering/Resolving]
  - Product solubility abnormal [Recovering/Resolving]
  - Drug ineffective [Unknown]
  - Product coating issue [Unknown]
  - Drug clearance decreased [Recovering/Resolving]
  - Hypersensitivity [Recovering/Resolving]
  - Infection [Recovering/Resolving]
  - Poor quality drug administered [Unknown]
